FAERS Safety Report 14309845 (Version 3)
Quarter: 2018Q1

REPORT INFORMATION
  Report Type: Report from Study
  Country: DE (occurrence: DE)
  Receive Date: 20171220
  Receipt Date: 20180321
  Transmission Date: 20180509
  Serious: Yes (Hospitalization)
  Sender: FDA-Public Use
  Company Number: DE-CELLTRION INC.-2017DE017187

PATIENT

DRUGS (3)
  1. METAMIZOLE [Concomitant]
     Active Substance: METAMIZOLE
     Indication: GASTROOESOPHAGEAL REFLUX DISEASE
     Dosage: 500 MG
     Route: 048
     Dates: start: 20171013
  2. PANTOPRAZOLE [Concomitant]
     Active Substance: PANTOPRAZOLE
     Indication: GASTROOESOPHAGEAL REFLUX DISEASE
     Dosage: 40 MG
     Route: 048
  3. INFLECTRA [Suspect]
     Active Substance: INFLIXIMAB-DYYB
     Indication: CROHN^S DISEASE
     Dosage: 10 MG/KG, EVERY 8 WEEKS
     Route: 065
     Dates: start: 20160802

REACTIONS (1)
  - Intestinal anastomosis complication [Recovered/Resolved]

NARRATIVE: CASE EVENT DATE: 20170502
